APPROVED DRUG PRODUCT: OSMOPREP
Active Ingredient: SODIUM PHOSPHATE, DIBASIC, ANHYDROUS; SODIUM PHOSPHATE, MONOBASIC, MONOHYDRATE
Strength: 0.398GM;1.102GM **Federal Register determination that product was not discontinued or withdrawn for safety or effectiveness reasons**
Dosage Form/Route: TABLET;ORAL
Application: N021892 | Product #001
Applicant: SALIX PHARMACEUTICALS INC
Approved: Mar 16, 2006 | RLD: Yes | RS: No | Type: DISCN

PATENTS:
Patent 7687075 | Expires: Jun 22, 2028